FAERS Safety Report 13768891 (Version 3)
Quarter: 2017Q4

REPORT INFORMATION
  Report Type: Spontaneous
  Country: US (occurrence: US)
  Receive Date: 20170719
  Receipt Date: 20171228
  Transmission Date: 20180320
  Serious: No
  Sender: FDA-Public Use
  Company Number: US-LUNDBECK-DKLU2033788

PATIENT
  Age: 71 Year
  Sex: Male

DRUGS (1)
  1. NORTHERA [Suspect]
     Active Substance: DROXIDOPA
     Indication: PRODUCT USED FOR UNKNOWN INDICATION
     Dosage: SCHEDULE C (COMPLETE)
     Route: 048
     Dates: start: 20170702

REACTIONS (4)
  - Blood pressure decreased [Unknown]
  - Supine hypertension [Recovering/Resolving]
  - Dizziness postural [Unknown]
  - Fall [Unknown]

NARRATIVE: CASE EVENT DATE: 20170704
